FAERS Safety Report 12404287 (Version 1)
Quarter: 2016Q2

REPORT INFORMATION
  Report Type: Other
  Country: FR (occurrence: FR)
  Receive Date: 20160525
  Receipt Date: 20160525
  Transmission Date: 20160815
  Serious: Yes (Hospitalization)
  Sender: FDA-Public Use
  Company Number: FR-MYLANLABS-2016M1021539

PATIENT

DRUGS (12)
  1. FONDAPARINUX [Suspect]
     Active Substance: FONDAPARINUX
     Indication: DEEP VEIN THROMBOSIS
     Dosage: 7.5 MG, QD
     Route: 030
     Dates: start: 20160213, end: 20160222
  2. CREON [Concomitant]
     Active Substance: PANCRELIPASE AMYLASE\PANCRELIPASE LIPASE\PANCRELIPASE PROTEASE
     Indication: PRODUCT USED FOR UNKNOWN INDICATION
     Dosage: 3 DF, QD
     Route: 048
  3. LOVENOX [Concomitant]
     Active Substance: ENOXAPARIN SODIUM
     Indication: ANTICOAGULANT THERAPY
     Dosage: UNK
     Route: 065
     Dates: start: 20160204, end: 20160212
  4. PANTOPRAZOLE [Concomitant]
     Active Substance: PANTOPRAZOLE SODIUM
     Indication: PRODUCT USED FOR UNKNOWN INDICATION
     Dosage: 40 MG, BID
     Route: 048
  5. RISPERDAL CONSTA [Concomitant]
     Active Substance: RISPERIDONE
     Indication: PRODUCT USED FOR UNKNOWN INDICATION
     Dosage: 1 DF, BIMONTHLY
     Route: 030
  6. UVEDOSE [Concomitant]
     Active Substance: CHOLECALCIFEROL
     Indication: PRODUCT USED FOR UNKNOWN INDICATION
     Dosage: 1 DF, MONTHLY
     Route: 048
  7. CIPROFLOXACIN. [Concomitant]
     Active Substance: CIPROFLOXACIN
     Dosage: 1000 MG, QD
     Route: 048
     Dates: start: 20160213, end: 20160222
  8. GENTAMYCIN                         /00047101/ [Concomitant]
     Active Substance: GENTAMICIN
     Indication: INFECTION
     Dosage: 200 MG, QD
     Route: 042
     Dates: start: 20160204, end: 20160210
  9. CEFTAZIDIME. [Concomitant]
     Active Substance: CEFTAZIDIME
     Indication: INFECTION
     Dosage: 3 G, QD
     Route: 065
     Dates: start: 20160204, end: 20160212
  10. VANCOMYCIN [Concomitant]
     Active Substance: VANCOMYCIN
     Indication: INFECTION
     Dosage: 2 G, QD
     Route: 042
     Dates: start: 20160204, end: 20160212
  11. VANCOMYCIN [Concomitant]
     Active Substance: VANCOMYCIN
     Dosage: UNK
     Route: 065
     Dates: start: 20160222, end: 20160303
  12. CIPROFLOXACIN. [Concomitant]
     Active Substance: CIPROFLOXACIN
     Indication: INFECTION
     Dosage: 1200 MG, QD
     Route: 042
     Dates: start: 20160204, end: 20160212

REACTIONS (2)
  - Haematoma [Recovering/Resolving]
  - Medication error [Recovered/Resolved]

NARRATIVE: CASE EVENT DATE: 20160213
